FAERS Safety Report 10551193 (Version 1)
Quarter: 2014Q4

REPORT INFORMATION
  Report Type: Report from Study
  Country: US (occurrence: US)
  Receive Date: 20141029
  Receipt Date: 20141029
  Transmission Date: 20150529
  Serious: Yes (Disabling)
  Sender: FDA-Public Use
  Company Number: US-ROCHE-1481040

PATIENT
  Age: 85 Year
  Sex: Female
  Weight: 75 kg

DRUGS (2)
  1. RANIBIZUMAB [Suspect]
     Active Substance: RANIBIZUMAB
     Indication: AGE-RELATED MACULAR DEGENERATION
     Route: 050
     Dates: start: 20110523, end: 20110523
  2. RANIBIZUMAB [Suspect]
     Active Substance: RANIBIZUMAB
     Route: 050
     Dates: start: 20140721, end: 20140721

REACTIONS (1)
  - Spinal cord haemorrhage [Not Recovered/Not Resolved]

NARRATIVE: CASE EVENT DATE: 20140821
